FAERS Safety Report 11572652 (Version 3)
Quarter: 2016Q4

REPORT INFORMATION
  Report Type: Spontaneous
  Country: BR (occurrence: BR)
  Receive Date: 20150929
  Receipt Date: 20161027
  Transmission Date: 20170206
  Serious: Yes (Other)
  Sender: FDA-Public Use
  Company Number: BR-PFIZER INC-2015285073

PATIENT
  Age: 66 Year
  Sex: Female

DRUGS (5)
  1. GEODON [Suspect]
     Active Substance: ZIPRASIDONE HYDROCHLORIDE\ZIPRASIDONE MESYLATE
     Dosage: 40 MG, UNK
     Route: 048
  2. GEODON [Suspect]
     Active Substance: ZIPRASIDONE HYDROCHLORIDE\ZIPRASIDONE MESYLATE
     Indication: SCHIZOPHRENIA
     Dosage: 80 MG, 1X/DAY
     Route: 048
  3. GEODON [Suspect]
     Active Substance: ZIPRASIDONE HYDROCHLORIDE\ZIPRASIDONE MESYLATE
     Dosage: 80 MG, UNK
     Route: 048
  4. RIVOTRIL [Concomitant]
     Active Substance: CLONAZEPAM
     Indication: SLEEP DISORDER THERAPY
     Dosage: UNK
  5. DIAZEPAM. [Concomitant]
     Active Substance: DIAZEPAM
     Indication: SLEEP DISORDER
     Dosage: UNK

REACTIONS (10)
  - Irritability [Unknown]
  - Mania [Not Recovered/Not Resolved]
  - Fear of injection [Unknown]
  - Drug ineffective [Unknown]
  - Logorrhoea [Not Recovered/Not Resolved]
  - Aggression [Unknown]
  - Insomnia [Unknown]
  - Hallucination [Unknown]
  - Somnolence [Unknown]
  - Drug dependence [Unknown]
